FAERS Safety Report 8600540-5 (Version None)
Quarter: 2012Q3

REPORT INFORMATION
  Report Type: 
  Country: None (occurrence: None)
  Receive Date: 20120808
  Receipt Date: 20120808
  Transmission Date: 20120928
  Serious: Yes (Disabling)
  Sender: FDA-Public Use
  Company Number: None

PATIENT
  Age: 70 Year
  Sex: Female

DRUGS (3)
  1. AVELOX [Suspect]
     Indication: PIGMENT DISPERSION SYNDROME
     Dosage: 400MG DAILY
     Dates: start: 20110427, end: 20110503
  2. AVELOX [Suspect]
     Indication: UVEITIS
     Dosage: 400MG DAILY
     Dates: start: 20110427, end: 20110503
  3. AVELOX [Suspect]
     Indication: GLAUCOMA
     Dosage: 400MG DAILY
     Dates: start: 20110427, end: 20110503

REACTIONS (3)
  - PIGMENT DISPERSION SYNDROME [None]
  - UVEITIS [None]
  - GLAUCOMA [None]
